FAERS Safety Report 7465992-5 (Version None)
Quarter: 2011Q2

REPORT INFORMATION
  Report Type: 
  Country: None (occurrence: None)
  Receive Date: 20110509
  Receipt Date: 20100518
  Transmission Date: 20111010
  Serious: No
  Sender: FDA-Public Use
  Company Number: US-ALEXION-A201000574

PATIENT
  Sex: Male

DRUGS (7)
  1. VITAMINS NOS [Concomitant]
  2. LASIX [Concomitant]
  3. FOLIC ACID [Concomitant]
  4. NORVASC [Concomitant]
     Indication: HYPERTENSION
     Dosage: 1/2 PILL
  5. PROZAC                             /00724401/ [Concomitant]
  6. SOLIRIS [Suspect]
     Indication: PAROXYSMAL NOCTURNAL HAEMOGLOBINURIA
     Dosage: 600 MG, QWK
     Route: 042
     Dates: start: 20091201
  7. SOLIRIS [Suspect]
     Dosage: 900 MG, Q2WKS
     Route: 042

REACTIONS (16)
  - PAIN IN EXTREMITY [None]
  - BACK PAIN [None]
  - NAUSEA [None]
  - OEDEMA PERIPHERAL [None]
  - PAIN [None]
  - VOMITING [None]
  - ARTHRALGIA [None]
  - GOUT [None]
  - BLOOD CREATININE INCREASED [None]
  - BLOOD POTASSIUM INCREASED [None]
  - HAEMOGLOBINURIA [None]
  - RENAL IMPAIRMENT [None]
  - URINE COLOUR ABNORMAL [None]
  - BLOOD UREA INCREASED [None]
  - HAEMOLYSIS [None]
  - ABDOMINAL PAIN [None]
